FAERS Safety Report 21842955 (Version 1)
Quarter: 2023Q1

REPORT INFORMATION
  Report Type: Spontaneous
  Country: US (occurrence: US)
  Receive Date: 20230110
  Receipt Date: 20230110
  Transmission Date: 20230417
  Serious: No
  Sender: FDA-Public Use
  Company Number: US-SA-SAC20230109001202

PATIENT
  Sex: Female

DRUGS (1)
  1. DUPIXENT [Suspect]
     Active Substance: DUPILUMAB
     Indication: Bell^s palsy
     Dosage: 300 MG, QOW
     Route: 058
     Dates: start: 202211

REACTIONS (2)
  - Oral herpes [Unknown]
  - Product use in unapproved indication [Unknown]
